FAERS Safety Report 8906507 (Version 1)
Quarter: 2012Q4

REPORT INFORMATION
  Report Type: Spontaneous
  Country: CA (occurrence: None)
  Receive Date: 20121108
  Receipt Date: 20121108
  Transmission Date: 20130627
  Serious: Yes (Other)
  Sender: FDA-Public Use
  Company Number: 2012100130

PATIENT
  Age: 35 Year
  Sex: Male

DRUGS (2)
  1. MESALAMINE [Suspect]
     Dates: start: 201011
  2. INFLIXIMAB [Suspect]
     Dosage: 0, 2, AND 8 WEEKS
     Dates: start: 201107

REACTIONS (3)
  - Pancreatitis acute [None]
  - Guillain-Barre syndrome [None]
  - Carpal tunnel syndrome [None]
